FAERS Safety Report 6188668-3 (Version None)
Quarter: 2009Q2

REPORT INFORMATION
  Report Type: 
  Country: None (occurrence: None)
  Receive Date: 20090513
  Receipt Date: 20090504
  Transmission Date: 20091009
  Serious: Yes (Hospitalization)
  Sender: FDA-Public Use
  Company Number: US-WATSON-2009-03170

PATIENT
  Age: 50 Year
  Sex: Female

DRUGS (2)
  1. HYDROCHLOROTHIAZIDE (WATSON LABORATORIES) [Suspect]
     Indication: DRUG USE FOR UNKNOWN INDICATION
     Dosage: 25 MG, SINGLE
     Route: 048
     Dates: start: 19930101
  2. PILOCARPINE [Suspect]
     Indication: ANGLE CLOSURE GLAUCOMA
     Dosage: UNK

REACTIONS (2)
  - GLAUCOMA [None]
  - POTENTIATING DRUG INTERACTION [None]
